FAERS Safety Report 5751040-1 (Version None)
Quarter: 2008Q2

REPORT INFORMATION
  Report Type: 
  Country: None (occurrence: None)
  Receive Date: 20080528
  Receipt Date: 20080521
  Transmission Date: 20081010
  Serious: Yes (Other)
  Sender: FDA-Public Use
  Company Number: AU-AVENTIS-200814771GDDC

PATIENT
  Age: 67 Year
  Sex: Female

DRUGS (2)
  1. ARAVA [Suspect]
     Route: 048
     Dates: start: 19990201
  2. METHOTREXATE [Concomitant]
     Dosage: DOSE: UNK

REACTIONS (3)
  - EYE DISORDER [None]
  - HEPATIC ENZYME INCREASED [None]
  - MOUTH ULCERATION [None]
